FAERS Safety Report 19010916 (Version 1)
Quarter: 2021Q1

REPORT INFORMATION
  Report Type: Spontaneous
  Country: JP (occurrence: JP)
  Receive Date: 20210315
  Receipt Date: 20210315
  Transmission Date: 20210420
  Serious: Yes (Hospitalization, Other)
  Sender: FDA-Public Use
  Company Number: JP-GLAXOSMITHKLINE-JP2021JPN058551

PATIENT
  Age: 76 Year
  Sex: Female
  Weight: 51.2 kg

DRUGS (11)
  1. VALACICLOVIR HYDROCHLORIDE [Suspect]
     Active Substance: VALACYCLOVIR HYDROCHLORIDE
     Indication: HERPES ZOSTER
     Dosage: 1000 MG, TID
     Route: 048
     Dates: start: 20210113, end: 20210116
  2. CIBENOL [Concomitant]
     Active Substance: CIFENLINE
     Dosage: 100 MG, BID, ABOUT 30 MINUTES AFTER BREAKFAST AND DINNER
  3. LOXOPROFEN NA TABLET [Concomitant]
     Dosage: 60 MG, BID, 30 MINUTES AFTER BREAKFAST AND DINNER
  4. VIDARABINE [Concomitant]
     Active Substance: VIDARABINE
     Dosage: UNK
  5. ATORVASTATIN TABLET [Concomitant]
     Active Substance: ATORVASTATIN
     Dosage: 10 MG, QD, BEFORE BEDTIME
  6. VALSARTAN. [Concomitant]
     Active Substance: VALSARTAN
     Dosage: 80 MG, QD, ABOUT 30 MINUTES AFTER DINNER
  7. RABEPRAZOLE NA TABLET [Concomitant]
     Dosage: 10 MG, QD, 30 MINUTES AFTER BREAKFAST
  8. HYPOCA [Concomitant]
     Active Substance: BARNIDIPINE HYDROCHLORIDE
     Dosage: 15 MG, QD, ABOUT 30 MINUTES AFTER BREAKFAST
  9. LEVOCETIRIZINE HYDROCHLORIDE [Concomitant]
     Active Substance: LEVOCETIRIZINE HYDROCHLORIDE
     Dosage: 5 MG, QD, 30 MINUTES AFTER DINNER
  10. URSODEOXYCHOLIC ACID TABLET [Concomitant]
     Dosage: 2 DF, BID, 30 MINUTES AFTER BREAKFAST AND DINNER
  11. REBAMIPIDE TABLET [Concomitant]
     Dosage: 100 MG, BID, 30 MINUTES AFTER BREAKFAST AND DINNER

REACTIONS (10)
  - Fluid intake reduced [Unknown]
  - Cerebral disorder [Unknown]
  - Urinary retention [Unknown]
  - Speech disorder [Unknown]
  - Dialysis [Unknown]
  - Dysarthria [Unknown]
  - Acute kidney injury [Recovered/Resolved]
  - Toxic encephalopathy [Recovering/Resolving]
  - Decreased appetite [Unknown]
  - Palatal palsy [Unknown]

NARRATIVE: CASE EVENT DATE: 20210115
